FAERS Safety Report 12610250 (Version 1)
Quarter: 2016Q3

REPORT INFORMATION
  Report Type: Spontaneous
  Country: CH (occurrence: CH)
  Receive Date: 20160801
  Receipt Date: 20160801
  Transmission Date: 20161109
  Serious: Yes (Hospitalization)
  Sender: FDA-Public Use
  Company Number: CH-TEVA-681220ISR

PATIENT
  Age: 86 Year
  Sex: Female
  Weight: 60 kg

DRUGS (9)
  1. METOPROLOL MEPHA ZOK [Suspect]
     Active Substance: METOPROLOL SUCCINATE
     Indication: ATRIAL TACHYCARDIA
     Dosage: 50 MILLIGRAM DAILY;
     Route: 048
     Dates: start: 20160629, end: 20160703
  2. METOPROLOL MEPHA ZOK [Suspect]
     Active Substance: METOPROLOL SUCCINATE
     Dosage: 75 MILLIGRAM DAILY; STRENGTH UNSPECIFIED
     Route: 048
     Dates: start: 20160704, end: 20160706
  3. IRBESARTAN. [Concomitant]
     Active Substance: IRBESARTAN
     Dosage: 225 MILLIGRAM DAILY; UNSPECIFIED STRENGTH, LONG TERM TREATMENT
     Route: 048
  4. TRADJENTA [Concomitant]
     Active Substance: LINAGLIPTIN
     Indication: DIABETES MELLITUS
     Dosage: 5 MILLIGRAM DAILY; UNSPECIFIED STRENGTH, LONG TERM TREATMENT
     Route: 048
  5. BACTRIM [Concomitant]
     Active Substance: SULFAMETHOXAZOLE\TRIMETHOPRIM
     Indication: URINARY TRACT INFECTION
     Dosage: UNSPECIFIED STRENGTH, DOSE UNKNOWN
     Route: 048
     Dates: start: 20160701, end: 20160704
  6. BRILIQUE [Concomitant]
     Active Substance: TICAGRELOR
     Indication: CORONARY ARTERIAL STENT INSERTION
     Dosage: 180 MILLIGRAM DAILY; UNSPECIFIED STRENGTH, ONGOING
     Route: 048
     Dates: start: 201606
  7. ASPIRIN CARDIO [Concomitant]
     Active Substance: ASPIRIN
     Indication: PLATELET AGGREGATION
     Dosage: 100 MILLIGRAM DAILY; UNSPECIFIED STRENGTH, LONG TERM TREATMENT
     Route: 048
     Dates: start: 201606
  8. ATORVASTATIN [Concomitant]
     Active Substance: ATORVASTATIN
     Dosage: 20 MILLIGRAM DAILY; UNSPECIFIED STRENGTH, LONG TERM TREATMENT
     Route: 048
  9. METFORMIN [Concomitant]
     Active Substance: METFORMIN HYDROCHLORIDE
     Dosage: 2000 MILLIGRAM DAILY; UNSPECIFIED STRENGHT, STOPPED DUE TO DIGESTIV SYMPTOMS
     Route: 048
     Dates: end: 20160703

REACTIONS (3)
  - Therapeutic response changed [Recovered/Resolved]
  - Dyspnoea exertional [Recovered/Resolved]
  - Tachycardia [Recovered/Resolved]

NARRATIVE: CASE EVENT DATE: 20160629
